FAERS Safety Report 23847279 (Version 1)
Quarter: 2024Q2

REPORT INFORMATION
  Report Type: Spontaneous
  Country: US (occurrence: US)
  Receive Date: 20240513
  Receipt Date: 20240513
  Transmission Date: 20240715
  Serious: No
  Sender: FDA-Public Use
  Company Number: US-Bion-013047

PATIENT
  Age: 79 Year
  Sex: Female

DRUGS (1)
  1. LOPERAMIDE HYDROCHLORIDE [Suspect]
     Active Substance: LOPERAMIDE HYDROCHLORIDE
     Indication: Diarrhoea
     Dosage: 2 GELCAPS ONE TIMEAND 1 GELCAPS AFTERTHAT

REACTIONS (3)
  - Feeling abnormal [Unknown]
  - Pain [Unknown]
  - Drug ineffective [Not Recovered/Not Resolved]
